FAERS Safety Report 5583027-6 (Version None)
Quarter: 2008Q1

REPORT INFORMATION
  Report Type: 
  Country: None (occurrence: None)
  Receive Date: 20080107
  Receipt Date: 20080102
  Transmission Date: 20080703
  Serious: Yes (Other)
  Sender: FDA-Public Use
  Company Number: A0686930A

PATIENT
  Age: 69 Year
  Sex: Male

DRUGS (4)
  1. REQUIP [Suspect]
     Indication: PARKINSON'S DISEASE
     Dosage: .25MG THREE TIMES PER DAY
     Route: 048
     Dates: start: 20071001, end: 20071001
  2. METFORMIN HCL [Concomitant]
  3. GLIPIZIDE [Concomitant]
  4. METOPROLOL [Concomitant]

REACTIONS (4)
  - BLOOD PRESSURE DECREASED [None]
  - DIABETES MELLITUS [None]
  - INTENTIONAL OVERDOSE [None]
  - SYNCOPE [None]
